FAERS Safety Report 4411462-8 (Version None)
Quarter: 2004Q2

REPORT INFORMATION
  Report Type: 
  Country: None (occurrence: None)
  Receive Date: 20040630
  Receipt Date: 20040525
  Transmission Date: 20050107
  Serious: No
  Sender: FDA-Public Use
  Company Number: 04P-163-0261872-00

PATIENT
  Age: 55 Year
  Sex: Female
  Weight: 88.4514 kg

DRUGS (9)
  1. HUMIRA [Suspect]
     Indication: RHEUMATOID ARTHRITIS
     Dosage: 40 MG, 1 IN 2 WK, SUBCUTAENOUS
     Route: 058
     Dates: start: 20040201, end: 20040513
  2. METOPROLOL SUCCINATE [Concomitant]
  3. LOTREL [Concomitant]
  4. LEVOTHYROXINE SODIUM [Concomitant]
  5. AZATHIOPRINE [Concomitant]
  6. PREDNISONE [Concomitant]
  7. CALCIUM [Concomitant]
  8. MULTI-VITAMINS [Concomitant]
  9. LORAZEPAM [Concomitant]

REACTIONS (6)
  - DRUG EFFECT DECREASED [None]
  - INJECTION SITE ERYTHEMA [None]
  - INJECTION SITE INDURATION [None]
  - INJECTION SITE URTICARIA [None]
  - INJECTION SITE VESICLES [None]
  - INJECTION SITE WARMTH [None]
